FAERS Safety Report 15563769 (Version 2)
Quarter: 2018Q4

REPORT INFORMATION
  Report Type: Spontaneous
  Country: US (occurrence: US)
  Receive Date: 20181029
  Receipt Date: 20181231
  Transmission Date: 20190205
  Serious: Yes (Death, Other)
  Sender: FDA-Public Use
  Company Number: US-BRISTOL-MYERS SQUIBB COMPANY-BMS-2018-101299

PATIENT
  Age: 46 Year
  Sex: Male

DRUGS (1)
  1. OPDIVO [Suspect]
     Active Substance: NIVOLUMAB
     Indication: HEPATIC CANCER METASTATIC
     Dosage: UNK UNK, Q2WK
     Route: 042

REACTIONS (9)
  - Rash [Unknown]
  - Skin discolouration [Unknown]
  - Infection [Unknown]
  - Back pain [Unknown]
  - Death [Fatal]
  - Scab [Unknown]
  - Blister [Unknown]
  - Swelling [Unknown]
  - Malignant neoplasm progression [Unknown]

NARRATIVE: CASE EVENT DATE: 20181008
